FAERS Safety Report 5988212-7 (Version None)
Quarter: 2008Q4

REPORT INFORMATION
  Report Type: 
  Country: None (occurrence: None)
  Receive Date: 20081204
  Receipt Date: 20081118
  Transmission Date: 20090506
  Serious: Yes (Hospitalization, Other)
  Sender: FDA-Public Use
  Company Number: 1-16902944

PATIENT
  Age: 43 Year
  Sex: Female
  Weight: 106.1417 kg

DRUGS (19)
  1. BUPHENYL [Suspect]
     Indication: AMMONIA INCREASED
     Dosage: 12 TABS 3X/DAILY ORALLY
     Route: 048
     Dates: start: 20060101, end: 20081101
  2. RITALIN [Concomitant]
  3. ADDERALL 10 [Concomitant]
  4. PROVIGIL [Concomitant]
  5. ZYRTEC [Concomitant]
  6. CODEINE SUL TAB [Concomitant]
  7. FLEXERIL [Concomitant]
  8. DOXYCYCLINE [Concomitant]
  9. ACYCLOVIR [Concomitant]
  10. ASPIRIN [Concomitant]
  11. SPIRONOLACTONE [Concomitant]
  12. ACIDOPHILLUS [Concomitant]
  13. MULTI-VITAMINS [Concomitant]
  14. VIT. B2 [Concomitant]
  15. VIT. D [Concomitant]
  16. VIT. B6 [Concomitant]
  17. VIT. B12 [Concomitant]
  18. ZINC [Concomitant]
  19. LY-LYCINE [Concomitant]

REACTIONS (10)
  - ANTINUCLEAR ANTIBODY INCREASED [None]
  - COORDINATION ABNORMAL [None]
  - DEHYDRATION [None]
  - DYSPHAGIA [None]
  - ERYTHROMELALGIA [None]
  - HEADACHE [None]
  - INFLAMMATION [None]
  - LIVER FUNCTION TEST ABNORMAL [None]
  - RASH [None]
  - WEIGHT INCREASED [None]
